FAERS Safety Report 14857819 (Version 2)
Quarter: 2018Q3

REPORT INFORMATION
  Report Type: Spontaneous
  Country: US (occurrence: US)
  Receive Date: 20180508
  Receipt Date: 20180910
  Transmission Date: 20181010
  Serious: Yes (Hospitalization, Other)
  Sender: FDA-Public Use
  Company Number: PHEH2018US016963

PATIENT
  Sex: Female

DRUGS (2)
  1. AFINITOR [Suspect]
     Active Substance: EVEROLIMUS
     Indication: CARCINOID SYNDROME
     Route: 065
  2. TELOTRISTAT ETHYL [Suspect]
     Active Substance: TELOTRISTAT ETHYL
     Indication: CARCINOID SYNDROME
     Dosage: 250 MG, QD
     Route: 048
     Dates: start: 20180405

REACTIONS (19)
  - Nausea [Unknown]
  - Heart rate decreased [Unknown]
  - Weight decreased [Unknown]
  - Tricuspid valve incompetence [Unknown]
  - Arrhythmia [Unknown]
  - Hypothyroidism [Unknown]
  - Cough [Unknown]
  - Metastases to liver [Unknown]
  - Dyspnoea exertional [Unknown]
  - Metastases to heart [Unknown]
  - Asthenia [Unknown]
  - Heart rate increased [Unknown]
  - Abdominal pain [Unknown]
  - Diarrhoea [Unknown]
  - Dehydration [Unknown]
  - Vomiting [Unknown]
  - Dyspnoea [Unknown]
  - Failure to thrive [Unknown]
  - Blood pressure increased [Unknown]
